FAERS Safety Report 12875848 (Version 1)
Quarter: 2016Q4

REPORT INFORMATION
  Report Type: Spontaneous
  Country: US (occurrence: US)
  Receive Date: 20161024
  Receipt Date: 20161024
  Transmission Date: 20170207
  Serious: No
  Sender: FDA-Public Use
  Company Number: US-JAZZ-2016-US-014979

PATIENT
  Sex: Female

DRUGS (27)
  1. ZETIA [Concomitant]
     Active Substance: EZETIMIBE
  2. PYRIDIUM [Concomitant]
     Active Substance: PHENAZOPYRIDINE
  3. ANTIVERT [Concomitant]
     Active Substance: MECLIZINE HYDROCHLORIDE
  4. PROCHLORPERAZINE. [Concomitant]
     Active Substance: PROCHLORPERAZINE
  5. ULTRAM [Concomitant]
     Active Substance: TRAMADOL HYDROCHLORIDE
  6. XYREM [Suspect]
     Active Substance: SODIUM OXYBATE
     Dosage: DOSE ADJUSTMENTS
     Route: 048
     Dates: start: 201506, end: 201603
  7. DEXAMETHASONE. [Concomitant]
     Active Substance: DEXAMETHASONE
  8. DRISDOL [Concomitant]
     Active Substance: ERGOCALCIFEROL
  9. REQUIP [Concomitant]
     Active Substance: ROPINIROLE HYDROCHLORIDE
  10. XYREM [Suspect]
     Active Substance: SODIUM OXYBATE
     Indication: NARCOLEPSY
     Dosage: 2.25 G, BID
     Route: 048
     Dates: start: 201506, end: 201506
  11. XYREM [Suspect]
     Active Substance: SODIUM OXYBATE
     Dosage: 3 G, SECOND DOSE
     Route: 048
     Dates: start: 201603
  12. CLARITIN [Concomitant]
     Active Substance: LORATADINE
  13. TAMOXIFEN [Concomitant]
     Active Substance: TAMOXIFEN
  14. XYREM [Suspect]
     Active Substance: SODIUM OXYBATE
     Dosage: 3.75 G, FIRST DOSE
     Route: 048
     Dates: start: 201603
  15. CALCIUM + VIT D [Concomitant]
     Active Substance: CALCIUM\VITAMIN D
  16. LAMICTAL [Concomitant]
     Active Substance: LAMOTRIGINE
  17. LIDODERM [Concomitant]
     Active Substance: LIDOCAINE
  18. ZEGERID [Concomitant]
     Active Substance: OMEPRAZOLE\SODIUM BICARBONATE
  19. MAGNESIUM GLUCONICUM [Concomitant]
  20. MACRODANTIN [Concomitant]
     Active Substance: NITROFURANTOIN
  21. ALLEGRA ALLERGY [Concomitant]
     Active Substance: FEXOFENADINE HYDROCHLORIDE
  22. DOMPERIDONE [Concomitant]
     Active Substance: DOMPERIDONE
  23. METHOTREXATE. [Concomitant]
     Active Substance: METHOTREXATE
  24. STOOL SOFTENER (DOCUSATE CALCIUM) [Concomitant]
     Active Substance: DOCUSATE CALCIUM
  25. ASPIRIN. [Concomitant]
     Active Substance: ASPIRIN
  26. NUVIGIL [Concomitant]
     Active Substance: ARMODAFINIL
  27. XANAX [Concomitant]
     Active Substance: ALPRAZOLAM

REACTIONS (1)
  - Pre-existing condition improved [Unknown]
